FAERS Safety Report 4392408-8 (Version None)
Quarter: 2004Q3

REPORT INFORMATION
  Report Type: 
  Country: None (occurrence: None)
  Receive Date: 20040702
  Receipt Date: 20040422
  Transmission Date: 20050211
  Serious: Yes (Other)
  Sender: FDA-Public Use
  Company Number: 2004UW04209

PATIENT
  Sex: Male
  Weight: 74.8435 kg

DRUGS (4)
  1. CRESTOR [Suspect]
     Indication: BLOOD CHOLESTEROL INCREASED
     Dates: start: 20040202, end: 20040227
  2. EFFEXOR [Concomitant]
  3. PREVACID [Concomitant]
  4. ZYRTEC [Concomitant]

REACTIONS (4)
  - ARTHRALGIA [None]
  - BLOOD CREATINE PHOSPHOKINASE INCREASED [None]
  - FEELING ABNORMAL [None]
  - MYALGIA [None]
